FAERS Safety Report 6615829-9 (Version None)
Quarter: 2010Q1

REPORT INFORMATION
  Report Type: 
  Country: None (occurrence: None)
  Receive Date: 20100305
  Receipt Date: 20100222
  Transmission Date: 20100710
  Serious: Yes (Other)
  Sender: FDA-Public Use
  Company Number: GB-BRISTOL-MYERS SQUIBB COMPANY-15002173

PATIENT
  Age: 5 Year
  Sex: Male

DRUGS (1)
  1. NADOLOL [Suspect]
     Indication: ARRHYTHMIA

REACTIONS (2)
  - HYPOGLYCAEMIA [None]
  - SYNCOPE [None]
